FAERS Safety Report 11681186 (Version 1)
Quarter: 2015Q4

REPORT INFORMATION
  Report Type: Spontaneous
  Country: MX (occurrence: MX)
  Receive Date: 20151029
  Receipt Date: 20151029
  Transmission Date: 20160304
  Serious: Yes (Hospitalization)
  Sender: FDA-Public Use
  Company Number: MX-ROCHE-1651828

PATIENT
  Sex: Female
  Weight: 60 kg

DRUGS (8)
  1. CLONAZEPAM. [Suspect]
     Active Substance: CLONAZEPAM
     Indication: INSOMNIA
     Dosage: 14 DROPS PER DAY
     Route: 048
     Dates: start: 2011, end: 2012
  2. CLONAZEPAM. [Suspect]
     Active Substance: CLONAZEPAM
     Indication: INSOMNIA
     Dosage: ONGOING/AVERAGE TABLET AT NIGHT
     Route: 048
     Dates: start: 2012
  3. LIPITOR [Concomitant]
     Active Substance: ATORVASTATIN CALCIUM
     Indication: HYPERTRIGLYCERIDAEMIA
     Dosage: ONGOING/ AT NIGHT
     Route: 048
     Dates: start: 2009
  4. UNIVAL (MEXICO) [Concomitant]
     Indication: GASTRITIS
     Dosage: ONGOING
     Route: 048
     Dates: start: 2015
  5. ALMETEC (MEXICO) [Concomitant]
     Indication: HYPERTENSION
     Dosage: ONGOING
     Route: 048
     Dates: start: 2012
  6. NEXIUM-MUPS [Concomitant]
     Indication: GASTRITIS
     Dosage: ONGOING
     Route: 048
     Dates: start: 2007
  7. PRISTIQ EXTENDED RELEASE [Concomitant]
     Active Substance: DESVENLAFAXINE SUCCINATE
     Indication: ANXIETY
     Dosage: ONGOING
     Route: 048
     Dates: start: 2011
  8. LYRICA [Concomitant]
     Active Substance: PREGABALIN
     Indication: FIBROMYALGIA
     Dosage: ONGOING/AT NIGHT
     Route: 048
     Dates: start: 2012

REACTIONS (4)
  - Thyroid disorder [Not Recovered/Not Resolved]
  - Hiatus hernia [Recovered/Resolved]
  - Oesophageal disorder [Recovered/Resolved]
  - Off label use [Unknown]

NARRATIVE: CASE EVENT DATE: 2011
